FAERS Safety Report 7958594 (Version 4)
Quarter: 2013Q1

REPORT INFORMATION
  Report Type: Spontaneous
  Country: JP (occurrence: None)
  Receive Date: 20110506
  Receipt Date: 20130116
  Transmission Date: 20140127
  Serious: Yes (Hospitalization, Disabling, Other)
  Sender: FDA-Public Use
  Company Number: JP-2011-10496

PATIENT
  Age: 63 Year
  Sex: Female
  Weight: 61 kg

DRUGS (12)
  1. TOLVAPTAN [Suspect]
     Indication: HEPATIC CIRRHOSIS
     Route: 048
     Dates: start: 20110302, end: 20110308
  2. LASIX [Concomitant]
  3. AMINOLEBAN EN (NUTRITION FOR HEPATIC INSUFFISIENCY) [Concomitant]
  4. D-PENICILLAMINE [Concomitant]
  5. PYRIDOXAL PHOSPHATE [Concomitant]
  6. ISOLEUCINE\LEUCINE\VALINE [Concomitant]
  7. RABEPRAZOLE SODIUM [Concomitant]
  8. KANAMYCIN [Concomitant]
  9. DEXCHLORPHENIRAMINE MALEATE [Concomitant]
  10. RESTAMIN [Concomitant]
  11. LACTULOSE [Concomitant]
  12. SHAKUYAKU-KANZO-TO (SHAKUYAKU-KANZO-TO) [Concomitant]

REACTIONS (20)
  - Renal impairment [None]
  - Pleural effusion [None]
  - Ascites [None]
  - Abdominal distension [None]
  - Decreased appetite [None]
  - Pseudomembranous colitis [None]
  - Concomitant disease aggravated [None]
  - Pathogen resistance [None]
  - Infection [None]
  - Hypovolaemia [None]
  - Weight increased [None]
  - Dehydration [None]
  - Hepatic cirrhosis [None]
  - Disease progression [None]
  - Nausea [None]
  - Azotaemia [None]
  - Haemodialysis [None]
  - Balance disorder [None]
  - Insomnia [None]
  - Hypophagia [None]
